FAERS Safety Report 19498069 (Version 1)
Quarter: 2021Q3

REPORT INFORMATION
  Report Type: Spontaneous
  Country: DE (occurrence: DE)
  Receive Date: 20210706
  Receipt Date: 20210706
  Transmission Date: 20211014
  Serious: Yes (Hospitalization)
  Sender: FDA-Public Use
  Company Number: DE-TEVA-2021-DE-1929848

PATIENT
  Age: 56 Year
  Sex: Female

DRUGS (5)
  1. PANTOPRAZOL [Concomitant]
     Active Substance: PANTOPRAZOLE SODIUM
     Dosage: 40 MILLIGRAM DAILY;  1?0?0?0
     Route: 048
  2. LEVOTHYROXIN?NATRIUM [Concomitant]
     Active Substance: LEVOTHYROXINE SODIUM
     Dosage: 25 MICROGRAM DAILY;  1?0?0?0
     Route: 048
  3. CALCIUMCARBONAT [Concomitant]
     Dosage: 1200 MILLIGRAM DAILY; 1?0?1?0
     Route: 048
  4. PREDNISOLON [Suspect]
     Active Substance: PREDNISOLONE
     Dosage: 15 MILLIGRAM DAILY; 1?0?0?0
     Route: 048
  5. PREDNISOLON [Concomitant]
     Active Substance: PREDNISOLONE
     Dosage: 5 DOSAGE FORMS DAILY; FIVE TIMES A DAY, JUICE
     Route: 048

REACTIONS (4)
  - Abdominal pain upper [Not Recovered/Not Resolved]
  - Vomiting [Not Recovered/Not Resolved]
  - Constipation [Not Recovered/Not Resolved]
  - Dyspnoea [Not Recovered/Not Resolved]
